FAERS Safety Report 6335886-7 (Version None)
Quarter: 2009Q3

REPORT INFORMATION
  Report Type: 
  Country: None (occurrence: None)
  Receive Date: 20090901
  Receipt Date: 20071126
  Transmission Date: 20100115
  Serious: Yes (Other)
  Sender: FDA-Public Use
  Company Number: US-ASTRAZENECA-2007UW15852

PATIENT
  Age: 478 Month
  Sex: Female
  Weight: 129.3 kg

DRUGS (15)
  1. SEROQUEL [Suspect]
     Indication: SCHIZOPHRENIA, PARANOID TYPE
     Route: 048
     Dates: start: 20050106, end: 20060824
  2. SEROQUEL [Suspect]
     Indication: DEPRESSION
     Route: 048
     Dates: start: 20050106, end: 20060824
  3. SEROQUEL [Suspect]
     Indication: INSOMNIA
     Route: 048
     Dates: start: 20050106, end: 20060824
  4. SEROQUEL [Suspect]
     Dosage: 25 - 400 MG
     Route: 048
     Dates: start: 20050130
  5. SEROQUEL [Suspect]
     Dosage: 25 - 400 MG
     Route: 048
     Dates: start: 20050130
  6. SEROQUEL [Suspect]
     Dosage: 25 - 400 MG
     Route: 048
     Dates: start: 20050130
  7. EPHEDRINE [Concomitant]
     Dates: start: 20040101
  8. ABILIFY [Concomitant]
     Dates: start: 20060101
  9. NAVANE [Concomitant]
     Dates: start: 19970101, end: 20000101
  10. THORAZINE [Concomitant]
     Dates: start: 20040115
  11. HALDOL [Concomitant]
     Dates: start: 19970101, end: 20000101
  12. STELAZINE [Concomitant]
     Dosage: 5 - 15 MG
     Dates: start: 20010813
  13. CELEXA [Concomitant]
     Dosage: 20 - 80 MG
     Dates: start: 20010813
  14. VALIUM [Concomitant]
     Dosage: 5 - 20 MG
     Dates: start: 20021002
  15. PREDNISONE [Concomitant]
     Dosage: 60 - 10 MG
     Dates: start: 20031112

REACTIONS (6)
  - BLOOD CHOLESTEROL INCREASED [None]
  - DIABETES MELLITUS [None]
  - DIABETES MELLITUS INADEQUATE CONTROL [None]
  - DIABETIC NEPHROPATHY [None]
  - HYPERLIPIDAEMIA [None]
  - TYPE 2 DIABETES MELLITUS [None]
